FAERS Safety Report 25989925 (Version 1)
Quarter: 2025Q4

REPORT INFORMATION
  Report Type: Spontaneous
  Country: US (occurrence: None)
  Receive Date: 20251031
  Receipt Date: 20251031
  Transmission Date: 20260117
  Serious: Yes (unspecified)
  Sender: FDA-CTU
  Company Number: None

PATIENT
  Age: 26 Year
  Sex: Male
  Weight: 112 kg

DRUGS (1)
  1. RIABNI [Suspect]
     Active Substance: RITUXIMAB-ARRX
     Indication: Systemic lupus erythematosus
     Route: 042
     Dates: start: 20251011, end: 20251031

REACTIONS (10)
  - Infusion related reaction [None]
  - Urticaria [None]
  - Epigastric discomfort [None]
  - Chest discomfort [None]
  - Lacrimation increased [None]
  - Gastrooesophageal reflux disease [None]
  - Fatigue [None]
  - Fatigue [None]
  - Nausea [None]
  - Eye disorder [None]

NARRATIVE: CASE EVENT DATE: 20251031
